FAERS Safety Report 8491925-9 (Version None)
Quarter: 2012Q3

REPORT INFORMATION
  Report Type: 
  Country: None (occurrence: None)
  Receive Date: 20120706
  Receipt Date: 20120315
  Transmission Date: 20120928
  Serious: No
  Sender: FDA-Public Use
  Company Number: US-GLAXOSMITHKLINE-A0969891A

PATIENT
  Age: 46 Year
  Sex: Female

DRUGS (2)
  1. FLOVENT [Suspect]
     Indication: ASTHMA
     Dosage: 1PUFF TWICE PER DAY
     Route: 055
     Dates: start: 20110601, end: 20110601
  2. PATANOL [Concomitant]

REACTIONS (4)
  - ABDOMINAL DISCOMFORT [None]
  - CHEST DISCOMFORT [None]
  - NAUSEA [None]
  - DRUG INEFFECTIVE [None]
